FAERS Safety Report 22337377 (Version 1)
Quarter: 2023Q2

REPORT INFORMATION
  Report Type: Report from Study
  Country: IN (occurrence: IN)
  Receive Date: 20230518
  Receipt Date: 20230518
  Transmission Date: 20230721
  Serious: Yes (Other)
  Sender: FDA-Public Use
  Company Number: IN-002147023-NVSC2023IN110362

PATIENT
  Age: 52 Year
  Sex: Female

DRUGS (1)
  1. RIBOCICLIB [Suspect]
     Active Substance: RIBOCICLIB
     Indication: Breast cancer metastatic
     Dosage: 600 MG, QD
     Route: 048
     Dates: start: 20211216

REACTIONS (5)
  - Sclerodactylia [Unknown]
  - Metastasis [Unknown]
  - Follicular lymphoma [Unknown]
  - Metabolic disorder [Unknown]
  - Lymphadenopathy [Unknown]

NARRATIVE: CASE EVENT DATE: 20221122
